FAERS Safety Report 14882499 (Version 1)
Quarter: 2018Q2

REPORT INFORMATION
  Report Type: Spontaneous
  Country: US (occurrence: US)
  Receive Date: 20180425
  Receipt Date: 20180425
  Transmission Date: 20180711
  Serious: No
  Sender: FDA-Public Use
  Company Number: None

PATIENT
  Age: 41 Year
  Sex: Female
  Weight: 64.8 kg

DRUGS (11)
  1. QUERCITIN [Concomitant]
  2. RESVERATROL [Concomitant]
     Active Substance: DIETARY SUPPLEMENT\RESVERATROL
  3. NORTHERA [Suspect]
     Active Substance: DROXIDOPA
     Indication: POSTURAL ORTHOSTATIC TACHYCARDIA SYNDROME
     Dosage: ?          QUANTITY:6 CAPSULE(S);?
     Route: 048
     Dates: start: 20180407, end: 20180425
  4. VITAMIN D [Concomitant]
     Active Substance: CHOLECALCIFEROL
  5. CALCIUM/MAGNESIUM [Concomitant]
     Active Substance: CALCIUM\MAGNESIUM
  6. MULTIVITAMIN [Concomitant]
     Active Substance: VITAMINS
  7. BROMELAIN [Concomitant]
     Active Substance: BROMELAINS
  8. TURMERIC [Concomitant]
     Active Substance: HERBALS\TURMERIC
  9. VITAMIN B12 [Concomitant]
     Active Substance: CYANOCOBALAMIN
  10. COQ10 [Concomitant]
     Active Substance: UBIDECARENONE
  11. VITAMIN K1 [Concomitant]
     Active Substance: PHYTONADIONE

REACTIONS (4)
  - Nervousness [None]
  - Anxiety [None]
  - Pyrexia [None]
  - Muscle tightness [None]

NARRATIVE: CASE EVENT DATE: 20180417
